FAERS Safety Report 15892190 (Version 1)
Quarter: 2019Q1

REPORT INFORMATION
  Report Type: Report from Study
  Country: US (occurrence: US)
  Receive Date: 20190130
  Receipt Date: 20190130
  Transmission Date: 20190417
  Serious: No
  Sender: FDA-Public Use
  Company Number: US-EXELIXIS-CABO-18014804

PATIENT
  Sex: Male

DRUGS (4)
  1. XARELTO [Suspect]
     Active Substance: RIVAROXABAN
     Indication: PRODUCT USED FOR UNKNOWN INDICATION
     Dosage: UNK
  2. CABOMETYX [Suspect]
     Active Substance: CABOZANTINIB S-MALATE
     Dosage: 60 MG, UNK (INCREASED DOSE)
     Dates: start: 201802
  3. CABOMETYX [Suspect]
     Active Substance: CABOZANTINIB S-MALATE
     Indication: RENAL CELL CARCINOMA
     Dosage: 60 MG, 1 TAB ON TUESDAY, THURSDAY, SATURDAY, AND SUNDAY
     Route: 048
     Dates: start: 201802
  4. CABOMETYX [Suspect]
     Active Substance: CABOZANTINIB S-MALATE
     Dosage: 40 MG EVERYDAY BUT IN MEANTIME 60 MG TABLET CUT INTO HALF
     Route: 048

REACTIONS (7)
  - Wrong technique in product usage process [Unknown]
  - Lip swelling [Recovered/Resolved]
  - Skin ulcer [Unknown]
  - Fatigue [Unknown]
  - Stomatitis [Unknown]
  - Rash macular [Recovered/Resolved]
  - Dizziness [Unknown]

NARRATIVE: CASE EVENT DATE: 2018
